FAERS Safety Report 5862333-1 (Version None)
Quarter: 2008Q3

REPORT INFORMATION
  Report Type: 
  Country: None (occurrence: None)
  Receive Date: 20080828
  Receipt Date: 20080811
  Transmission Date: 20090109
  Serious: Yes (Hospitalization, Other)
  Sender: FDA-Public Use
  Company Number: DK-BAYER-DK-2007-022262

PATIENT
  Age: 39 Year
  Sex: Female

DRUGS (2)
  1. YASMIN [Suspect]
     Indication: AMENORRHOEA
     Route: 048
     Dates: start: 20070419, end: 20070525
  2. MAREVAN (WARFARIN) [Concomitant]
     Indication: DRUG USE FOR UNKNOWN INDICATION

REACTIONS (2)
  - DEEP VEIN THROMBOSIS [None]
  - POST THROMBOTIC SYNDROME [None]
